FAERS Safety Report 5583124-5 (Version None)
Quarter: 2008Q1

REPORT INFORMATION
  Report Type: 
  Country: None (occurrence: None)
  Receive Date: 20080103
  Receipt Date: 20080103
  Transmission Date: 20080703
  Serious: Yes (Death)
  Sender: FDA-Public Use
  Company Number: None

PATIENT
  Age: 87 Year
  Sex: Male

DRUGS (2)
  1. LOVENOX [Suspect]
     Indication: ATRIAL FIBRILLATION
     Dosage: 80MG  Q12HRS  SQ
     Route: 058
  2. LOVENOX [Suspect]
     Indication: TROPONIN INCREASED
     Dosage: 80MG  Q12HRS  SQ
     Route: 058

REACTIONS (7)
  - ANAEMIA [None]
  - HAEMORRHAGE [None]
  - INTRA-ABDOMINAL HAEMORRHAGE [None]
  - LUNG CONSOLIDATION [None]
  - PERITONEAL HAEMORRHAGE [None]
  - PLEURAL HAEMORRHAGE [None]
  - RECTAL HAEMORRHAGE [None]
